FAERS Safety Report 16720318 (Version 1)
Quarter: 2019Q4

REPORT INFORMATION
  Report Type: Spontaneous
  Country: US (occurrence: US)
  Receive Date: 20190819
  Receipt Date: 20190819
  Transmission Date: 20200122
  Serious: No
  Sender: FDA-Public Use
  Company Number: None

PATIENT
  Age: 50 Year
  Sex: Male
  Weight: 112.5 kg

DRUGS (2)
  1. RENFLEXIS [Suspect]
     Active Substance: INFLIXIMAB-ABDA
     Indication: THERAPY CESSATION
     Dosage: ?          OTHER FREQUENCY:TAPERING SCHEDULE;?
     Route: 042
     Dates: start: 20190816
  2. RENFLEXIS [Concomitant]
     Active Substance: INFLIXIMAB-ABDA
     Dates: start: 20190816

REACTIONS (2)
  - Feeling abnormal [None]
  - Chest discomfort [None]

NARRATIVE: CASE EVENT DATE: 20190816
